FAERS Safety Report 15159549 (Version 1)
Quarter: 2018Q3

REPORT INFORMATION
  Report Type: Report from Study
  Country: CN (occurrence: CN)
  Receive Date: 20180718
  Receipt Date: 20180718
  Transmission Date: 20181010
  Serious: Yes (Death)
  Sender: FDA-Public Use
  Company Number: CN-AMGEN-CHNCT2018062881

PATIENT
  Age: 55 Year
  Sex: Male

DRUGS (13)
  1. LEVOCARNITINE. [Concomitant]
     Active Substance: LEVOCARNITINE
     Indication: MYOCARDIAL ISCHAEMIA
     Dosage: 5 ML, UNK
     Route: 041
  2. VINPOCETINE [Concomitant]
     Active Substance: VINPOCETINE
     Indication: CARDIAC FAILURE
     Dosage: 6 ML, UNK
     Route: 041
  3. METOPROLOL SUCCINATE. [Concomitant]
     Active Substance: METOPROLOL SUCCINATE
     Indication: HYPERTENSION
     Dosage: 1 DF, UNK
     Route: 048
  4. PLAVIX [Concomitant]
     Active Substance: CLOPIDOGREL BISULFATE
     Indication: CORONARY ARTERY DISEASE
     Dosage: 75 MG, QD
     Route: 065
  5. AZITHROMYCIN ANHYDROUS. [Concomitant]
     Active Substance: AZITHROMYCIN ANHYDROUS
     Indication: INFECTION
     Dosage: 2 DF, UNK
     Route: 048
  6. CINACALCET HCL [Suspect]
     Active Substance: CINACALCET HYDROCHLORIDE
     Indication: HYPERPARATHYROIDISM SECONDARY
     Dosage: 25 MG, QD
     Route: 048
     Dates: start: 20180115, end: 20180324
  7. LOTENSIN [Concomitant]
     Active Substance: BENAZEPRIL HYDROCHLORIDE
     Indication: HYPERTENSION
     Dosage: 10 MG, BID
     Route: 065
  8. DOXOFYLLINE [Concomitant]
     Active Substance: DOXOFYLLINE
     Indication: BRONCHOSPASM
     Dosage: 20 ML, UNK
     Route: 041
  9. DESLANOSIDE [Concomitant]
     Active Substance: DESLANOSIDE
     Indication: CARDIAC FAILURE
     Dosage: 1 ML, UNK
     Route: 041
  10. PERDIPINE [Concomitant]
     Active Substance: NICARDIPINE HYDROCHLORIDE
     Indication: HYPERTENSION
     Dosage: 40 MG, TID
     Route: 065
  11. DILTIAZEM. [Concomitant]
     Active Substance: DILTIAZEM
     Indication: CORONARY ARTERY DISEASE
     Dosage: 30 MG, TID
     Route: 065
  12. ATORVASTATIN CALCIUM. [Concomitant]
     Active Substance: ATORVASTATIN CALCIUM
     Indication: CORONARY ARTERY DISEASE
     Dosage: 10 MG, AS NECESSARY (QN)
     Route: 065
  13. RECOMBINANT HUMAN BRAIN NATRIURETIC PEPTIDE [Concomitant]
     Indication: CARDIAC FAILURE
     Dosage: 0.5 ML, UNK
     Route: 041

REACTIONS (1)
  - Kidney rupture [Fatal]

NARRATIVE: CASE EVENT DATE: 20180310
